FAERS Safety Report 7147338 (Version 7)
Quarter: 2015Q4

REPORT INFORMATION
  Report Type: Spontaneous
  Country: US (occurrence: US)
  Receive Date: 20091013
  Receipt Date: 20151217
  Transmission Date: 20160305
  Serious: Yes (Life-Threatening, Hospitalization, Other)
  Sender: FDA-Public Use
  Company Number: US-BAYER-200935633NA

PATIENT
  Age: 19 Year
  Sex: Female
  Weight: 52 kg

DRUGS (13)
  1. VALPROIC ACID. [Concomitant]
     Active Substance: VALPROIC ACID
     Indication: CONVULSION PROPHYLAXIS
  2. ZOSYN [Concomitant]
     Active Substance: PIPERACILLIN SODIUM\TAZOBACTAM SODIUM
  3. PROTONIX [Concomitant]
     Active Substance: PANTOPRAZOLE SODIUM
  4. LOVENOX [Concomitant]
     Active Substance: ENOXAPARIN SODIUM
  5. COREG [Concomitant]
     Active Substance: CARVEDILOL
  6. CARVEDILOL. [Concomitant]
     Active Substance: CARVEDILOL
     Dosage: UNK UNK, QD
     Dates: start: 20090104
  7. GENTAMICIN. [Concomitant]
     Active Substance: GENTAMICIN
  8. BACLOFEN. [Concomitant]
     Active Substance: BACLOFEN
  9. ATIVAN [Concomitant]
     Active Substance: LORAZEPAM
  10. YAZ [Suspect]
     Active Substance: DROSPIRENONE\ETHINYL ESTRADIOL
     Indication: CONTRACEPTION
     Route: 048
     Dates: start: 2007, end: 2008
  11. FLAGYL [Concomitant]
     Active Substance: METRONIDAZOLE\METRONIDAZOLE HYDROCHLORIDE
     Indication: SEPSIS
  12. DIGOXIN [DIGOXIN] [Concomitant]
     Active Substance: DIGOXIN
     Dosage: UNK
     Dates: end: 20090104
  13. JEVITY [Concomitant]
     Active Substance: DIETARY SUPPLEMENT

REACTIONS (4)
  - Embolism arterial [None]
  - Brain injury [None]
  - Cardiac arrest [None]
  - Brain injury [None]

NARRATIVE: CASE EVENT DATE: 20081102
